FAERS Safety Report 13963295 (Version 3)
Quarter: 2017Q4

REPORT INFORMATION
  Report Type: Report from Study
  Country: US (occurrence: US)
  Receive Date: 20170913
  Receipt Date: 20171127
  Transmission Date: 20180320
  Serious: Yes (Hospitalization)
  Sender: FDA-Public Use
  Company Number: US-ROCHE-1980665

PATIENT
  Age: 51 Year
  Sex: Female
  Weight: 76.2 kg

DRUGS (7)
  1. TYLENOL [Concomitant]
     Active Substance: ACETAMINOPHEN
     Indication: PAIN
     Route: 048
     Dates: start: 2000
  2. ATEZOLIZUMAB. [Suspect]
     Active Substance: ATEZOLIZUMAB
     Indication: BREAST CANCER METASTATIC
     Dosage: DATE OF MOST RECENT DOSE OF ATEZOLIZUMAB (840 MG) PRIOR TO AE ONSET: 04/AUG/2017
     Route: 042
     Dates: start: 20170707
  3. COBIMETINIB. [Suspect]
     Active Substance: COBIMETINIB
     Indication: BREAST CANCER METASTATIC
     Dosage: DATE OF MOST RECENT DOSE OF OPEN LABEL COBIMETINIB (60 MG) PRIOR TO AE ONSET: 29/JUL/2017
     Route: 048
     Dates: start: 20170709
  4. NAB-PACLITAXEL [Suspect]
     Active Substance: PACLITAXEL
     Indication: BREAST CANCER METASTATIC
     Dosage: DATE OF MOST RECENT DOSE OF NAB-PACLITAXEL (181 MG) PRIOR TO AE ONSET: 21/JUL/2017
     Route: 042
     Dates: start: 20170707
  5. COMPAZINE [Concomitant]
     Active Substance: PROCHLORPERAZINE MALEATE
     Indication: VOMITING
     Route: 048
     Dates: start: 20170706
  6. SYNTHROID [Concomitant]
     Active Substance: LEVOTHYROXINE SODIUM
     Indication: HYPOTHYROIDISM
     Route: 048
     Dates: start: 20170806, end: 20170901
  7. CLINDAMYCIN. [Concomitant]
     Active Substance: CLINDAMYCIN
     Indication: RASH
     Route: 061
     Dates: start: 20170804

REACTIONS (1)
  - Kidney infection [Recovered/Resolved]

NARRATIVE: CASE EVENT DATE: 20170806
